FAERS Safety Report 8305884-2 (Version None)
Quarter: 2012Q2

REPORT INFORMATION
  Report Type: 
  Country: None (occurrence: None)
  Receive Date: 20120423
  Receipt Date: 20120413
  Transmission Date: 20120825
  Serious: Yes (Other)
  Sender: FDA-Public Use
  Company Number: US-SHIONOGI, INC-2011000159

PATIENT

DRUGS (1)
  1. EPINEPHRINE [Suspect]
     Dosage: 0.3 MG, UNK
     Dates: start: 20110902, end: 20110902

REACTIONS (7)
  - ERYTHEMA [None]
  - DEVICE FAILURE [None]
  - TACHYCARDIA [None]
  - NERVOUSNESS [None]
  - PRODUCT QUALITY ISSUE [None]
  - BLOOD PRESSURE INCREASED [None]
  - PAIN [None]
